FAERS Safety Report 9030328 (Version 4)
Quarter: 2016Q1

REPORT INFORMATION
  Report Type: Spontaneous
  Country: FR (occurrence: FR)
  Receive Date: 20130122
  Receipt Date: 20160114
  Transmission Date: 20160526
  Serious: Yes (Hospitalization, Other)
  Sender: FDA-Public Use
  Company Number: FR-PFIZER INC-2013021433

PATIENT
  Age: 44 Year
  Sex: Female

DRUGS (10)
  1. FLUCONAZOLE. [Suspect]
     Active Substance: FLUCONAZOLE
     Indication: CRYPTOCOCCOSIS
     Dosage: 400 MG, DAILY
     Route: 048
     Dates: start: 20121109, end: 20121219
  2. ISENTRESS [Suspect]
     Active Substance: RALTEGRAVIR POTASSIUM
     Dosage: 800 MG/DAY
     Route: 048
     Dates: start: 20121109, end: 201212
  3. WELLVONE [Suspect]
     Active Substance: ATOVAQUONE
     Dosage: 750 MG/5 ML AT 1 SPOON, 2X/DAY
     Route: 048
     Dates: end: 20121219
  4. INTELENCE [Concomitant]
     Active Substance: ETRAVIRINE
     Dosage: UNK
     Dates: start: 201212, end: 20121207
  5. LYRICA [Suspect]
     Active Substance: PREGABALIN
     Dosage: 50 MG, 1X/DAY
     Route: 048
     Dates: end: 20121219
  6. RIMIFON [Suspect]
     Active Substance: ISONIAZID
     Dosage: 200 MG, DAILY
     Route: 048
     Dates: end: 20121219
  7. ANSATIPINE [Suspect]
     Active Substance: RIFABUTIN
     Dosage: 450 MG, DAILY
     Route: 048
     Dates: end: 20121219
  8. ISENTRESS [Suspect]
     Active Substance: RALTEGRAVIR POTASSIUM
     Dosage: 800 MG/DAY
     Route: 048
     Dates: start: 20121207, end: 20121219
  9. VITAMIN B1 AND B6 [Concomitant]
     Active Substance: PYRIDOXINE HYDROCHLORIDE\THIAMINE HYDROCHLORIDE
     Dosage: 1 DF, 3X/DAY
  10. TRUVADA [Suspect]
     Active Substance: EMTRICITABINE\TENOFOVIR DISOPROXIL FUMARATE
     Dosage: 1 DF, 1X/DAY
     Route: 048
     Dates: start: 20121109, end: 20121219

REACTIONS (14)
  - Erythema [Recovered/Resolved]
  - Skin exfoliation [Recovered/Resolved]
  - Pruritus [Recovered/Resolved]
  - Agranulocytosis [Recovered/Resolved]
  - Drug reaction with eosinophilia and systemic symptoms [Recovered/Resolved]
  - Haematemesis [Recovered/Resolved]
  - Febrile neutropenia [Recovered/Resolved]
  - Vomiting [Recovered/Resolved]
  - Liver injury [Recovered/Resolved]
  - Face oedema [Recovered/Resolved]
  - Oedema peripheral [Recovered/Resolved]
  - Decreased appetite [Recovered/Resolved]
  - Eosinophilia [Recovered/Resolved]
  - Pyrexia [Recovered/Resolved]

NARRATIVE: CASE EVENT DATE: 201212
